FAERS Safety Report 25324502 (Version 4)
Quarter: 2025Q3

REPORT INFORMATION
  Report Type: Report from Study
  Country: JP (occurrence: JP)
  Receive Date: 20250516
  Receipt Date: 20250715
  Transmission Date: 20251020
  Serious: Yes (Hospitalization)
  Sender: SHIONOGI
  Company Number: JP-shionogi-202500004957

PATIENT
  Age: 76 Year
  Sex: Male
  Weight: 41 kg

DRUGS (15)
  1. CEFIDEROCOL [Suspect]
     Active Substance: CEFIDEROCOL
     Indication: Pneumonia
     Route: 041
     Dates: start: 20241231, end: 20250225
  2. CEFIDEROCOL [Suspect]
     Active Substance: CEFIDEROCOL
     Route: 041
     Dates: start: 20250226, end: 20250226
  3. PIPERACILLIN SODIUM\TAZOBACTAM SODIUM [Concomitant]
     Active Substance: PIPERACILLIN SODIUM\TAZOBACTAM SODIUM
     Indication: Pneumonia
     Route: 065
     Dates: start: 20241205, end: 20241226
  4. CIPROFLOXACIN [Concomitant]
     Active Substance: CIPROFLOXACIN
     Indication: Pneumonia
     Route: 065
     Dates: start: 20241206, end: 20241226
  5. AMIKACIN [Concomitant]
     Active Substance: AMIKACIN
     Indication: Pneumonia
     Route: 065
     Dates: start: 20241226, end: 20241231
  6. AMIKACIN [Concomitant]
     Active Substance: AMIKACIN
     Route: 065
     Dates: start: 20250103
  7. AMIKACIN [Concomitant]
     Active Substance: AMIKACIN
     Route: 065
     Dates: end: 20250225
  8. TELMISARTAN [Concomitant]
     Active Substance: TELMISARTAN
     Indication: Product used for unknown indication
     Route: 048
  9. AMLODIPINE [Concomitant]
     Active Substance: AMLODIPINE BESYLATE
     Indication: Product used for unknown indication
     Route: 048
  10. LINAGLIPTIN [Concomitant]
     Active Substance: LINAGLIPTIN
     Indication: Product used for unknown indication
     Route: 048
  11. EZETIMIBE [Concomitant]
     Active Substance: EZETIMIBE
     Indication: Product used for unknown indication
     Route: 048
  12. CALCIUM CARBONATE\CHOLECALCIFEROL\MAGNESIUM CARBONATE [Concomitant]
     Active Substance: CALCIUM CARBONATE\CHOLECALCIFEROL\MAGNESIUM CARBONATE
     Indication: Product used for unknown indication
     Route: 048
  13. DAYVIGO [Concomitant]
     Active Substance: LEMBOREXANT
     Indication: Product used for unknown indication
     Route: 048
  14. MAGNESIUM OXIDE [Concomitant]
     Active Substance: MAGNESIUM OXIDE
     Indication: Product used for unknown indication
     Route: 048
  15. INSULIN GLARGINE [Concomitant]
     Active Substance: INSULIN GLARGINE
     Indication: Product used for unknown indication
     Route: 065

REACTIONS (1)
  - Anaemia [Recovered/Resolved]

NARRATIVE: CASE EVENT DATE: 20250128
